FAERS Safety Report 7743282-0 (Version None)
Quarter: 2011Q3

REPORT INFORMATION
  Report Type: 
  Country: None (occurrence: None)
  Receive Date: 20110826
  Receipt Date: 20110815
  Transmission Date: 20111222
  Serious: Yes (Hospitalization)
  Sender: FDA-Public Use
  Company Number: WAES 1108USA02063

PATIENT
  Age: 51 Year
  Sex: Male

DRUGS (11)
  1. EMTRICITABINE/TENOFOVIR DISOPROXIL FUMARATE [Suspect]
     Indication: HIV INFECTION
     Dosage: 500 MG/DAILY, PO
     Route: 048
     Dates: start: 20091215
  2. HYDROCHLOROTHIAZIDE [Concomitant]
  3. VITAMIN TAB [Concomitant]
  4. VIAGRA [Concomitant]
  5. ZOLOFT [Concomitant]
  6. IBUPROFEN [Concomitant]
  7. TAB RALTEGRAVIR POTASSIUM [Suspect]
     Indication: HIV INFECTION
     Dosage: 400 MG, BID, PO
     Route: 048
     Dates: start: 20091215
  8. GLIPIZIDE [Suspect]
     Indication: DIABETES MELLITUS
     Dosage: DAILY, PO
     Route: 048
  9. NORVASC [Concomitant]
  10. FERROUS SULFATE TAB [Concomitant]
  11. NASONEX [Concomitant]

REACTIONS (4)
  - DIZZINESS [None]
  - HYPERGLYCAEMIA [None]
  - DEHYDRATION [None]
  - DYSARTHRIA [None]
